FAERS Safety Report 5645046-0 (Version None)
Quarter: 2008Q1

REPORT INFORMATION
  Report Type: 
  Country: None (occurrence: None)
  Receive Date: 20080229
  Receipt Date: 20080218
  Transmission Date: 20080703
  Serious: Yes (Hospitalization)
  Sender: FDA-Public Use
  Company Number: US-ELI_LILLY_AND_COMPANY-US200802003968

PATIENT
  Sex: Female

DRUGS (4)
  1. FORTEO [Suspect]
     Dosage: UNK, UNK
     Dates: start: 20070101
  2. PROZAC [Suspect]
     Dosage: 20 MG, UNK
     Dates: end: 20080101
  3. PROZAC [Suspect]
     Dosage: 40 MG, UNK
     Dates: start: 20080101
  4. THYROID TAB [Concomitant]

REACTIONS (15)
  - ANOREXIA [None]
  - ANXIETY [None]
  - ASTHENIA [None]
  - BACK PAIN [None]
  - DEHYDRATION [None]
  - DIZZINESS [None]
  - ELECTROLYTE IMBALANCE [None]
  - EXCORIATION [None]
  - FALL [None]
  - FATIGUE [None]
  - INSOMNIA [None]
  - MALAISE [None]
  - MUSCLE SPASMS [None]
  - NAUSEA [None]
  - WEIGHT DECREASED [None]
